FAERS Safety Report 6415324-6 (Version None)
Quarter: 2009Q4

REPORT INFORMATION
  Report Type: 
  Country: None (occurrence: None)
  Receive Date: 20091027
  Receipt Date: 20091015
  Transmission Date: 20100525
  Serious: Yes (Other)
  Sender: FDA-Public Use
  Company Number: PHEH2009US13885

PATIENT
  Sex: Female

DRUGS (2)
  1. DIOVAN HCT [Suspect]
  2. DIOVAN [Suspect]

REACTIONS (1)
  - HYPERTENSION [None]
